FAERS Safety Report 8920897 (Version 1)
Quarter: 2012Q4

REPORT INFORMATION
  Report Type: 
  Country: MX (occurrence: MX)
  Receive Date: 20121121
  Receipt Date: 20121121
  Transmission Date: 20130627
  Serious: Yes (Hospitalization)
  Sender: FDA-Public Use
  Company Number: MX-GLAXOSMITHKLINE-A1002306A

PATIENT
  Age: 57 Year
  Sex: Male

DRUGS (5)
  1. AROPAX [Suspect]
     Dosage: 20MG Per day
     Route: 048
     Dates: start: 20120104, end: 20121104
  2. CIPROFLOXACINE [Concomitant]
     Dosage: 1TAB Twice per day
     Route: 048
  3. ATORVASTATIN [Concomitant]
     Indication: BLOOD TRIGLYCERIDES
     Dosage: 1TAB Per day
     Dates: start: 20121109
  4. MICARDIS [Concomitant]
     Indication: HYPERTENSION
  5. PLAVIX [Concomitant]
     Dates: start: 201111

REACTIONS (1)
  - Convulsion [Recovered/Resolved]
